FAERS Safety Report 26110444 (Version 1)
Quarter: 2025Q4

REPORT INFORMATION
  Report Type: Spontaneous
  Country: US (occurrence: US)
  Receive Date: 20251202
  Receipt Date: 20251202
  Transmission Date: 20260118
  Serious: No
  Sender: GALDERMA
  Company Number: US-GALDERMA-US2025023897

PATIENT

DRUGS (1)
  1. AKLIEF [Suspect]
     Active Substance: TRIFAROTENE
     Indication: Product used for unknown indication
     Dosage: 1 DOSAGE FORM
     Route: 061

REACTIONS (8)
  - Lymphadenopathy [Unknown]
  - Pyrexia [Unknown]
  - Arthralgia [Unknown]
  - Influenza like illness [Unknown]
  - Swelling face [Unknown]
  - Lip swelling [Unknown]
  - Pharyngeal swelling [Unknown]
  - Hypersensitivity [Unknown]
